FAERS Safety Report 6082340-6 (Version None)
Quarter: 2009Q1

REPORT INFORMATION
  Report Type: 
  Country: None (occurrence: None)
  Receive Date: 20090218
  Receipt Date: 20090206
  Transmission Date: 20090719
  Serious: Yes (Hospitalization)
  Sender: FDA-Public Use
  Company Number: NL-ROCHE-610791

PATIENT

DRUGS (3)
  1. CAPECITABINE [Suspect]
     Indication: GASTRIC CANCER
     Dosage: PER PROTOCOL: DAY 1-14 EVERY 3 WEEKS FOR 3 CYCLES.
     Route: 048
     Dates: start: 20080624, end: 20080805
  2. CISPLATIN [Suspect]
     Indication: GASTRIC CANCER
     Dosage: PER PROTOCOL: DAY 1 FOR 3 CYCLES
     Route: 065
     Dates: start: 20080624, end: 20080805
  3. EPIRUBICIN [Suspect]
     Indication: GASTRIC CANCER
     Dosage: PER PROTOCOL:  DAY 1 FOR 3 CYCLES IMMEDIATELY PRIOR TO THE CISPLATIN
     Route: 042
     Dates: start: 20080624, end: 20080805

REACTIONS (1)
  - PNEUMONIA ASPIRATION [None]
